FAERS Safety Report 12540817 (Version 2)
Quarter: 2016Q3

REPORT INFORMATION
  Report Type: Spontaneous
  Country: TW (occurrence: TW)
  Receive Date: 20160708
  Receipt Date: 20160714
  Transmission Date: 20161109
  Serious: Yes (Other)
  Sender: FDA-Public Use
  Company Number: TW-PFIZER INC-2016330840

PATIENT
  Age: 49 Year
  Sex: Female

DRUGS (1)
  1. LYRICA [Suspect]
     Active Substance: PREGABALIN
     Indication: FIBROMYALGIA
     Dosage: 75 MG, 2X/DAY
     Route: 048
     Dates: start: 201602, end: 201603

REACTIONS (14)
  - Pharyngeal oedema [Not Recovered/Not Resolved]
  - Intentional product use issue [Unknown]
  - Hallucination [Recovering/Resolving]
  - Somnolence [Recovering/Resolving]
  - Menopause [Not Recovered/Not Resolved]
  - Tremor [Recovering/Resolving]
  - Constipation [Recovering/Resolving]
  - Vaginal discharge [Not Recovered/Not Resolved]
  - Dizziness [Recovering/Resolving]
  - Vision blurred [Recovering/Resolving]
  - Dyspnoea [Unknown]
  - Balance disorder [Recovering/Resolving]
  - Memory impairment [Recovering/Resolving]
  - Dry mouth [Recovering/Resolving]
